FAERS Safety Report 4575539-9 (Version None)
Quarter: 2005Q1

REPORT INFORMATION
  Report Type: 
  Country: None (occurrence: None)
  Receive Date: 20050118
  Receipt Date: 20040831
  Transmission Date: 20050727
  Serious: Yes (Hospitalization, Other)
  Sender: FDA-Public Use
  Company Number: HQWYE757601SEP04

PATIENT
  Sex: Female

DRUGS (1)
  1. PREMPRO [Suspect]
     Dosage: 0.625MG/  2.5MG, ORAL
     Route: 048
     Dates: start: 19971006, end: 20010801

REACTIONS (1)
  - BREAST CANCER [None]
